FAERS Safety Report 18283632 (Version 2)
Quarter: 2020Q3

REPORT INFORMATION
  Report Type: Spontaneous
  Country: DE (occurrence: DE)
  Receive Date: 20200918
  Receipt Date: 20200929
  Transmission Date: 20201103
  Serious: Yes (Other)
  Sender: FDA-Public Use
  Company Number: DE-BRISTOL-MYERS SQUIBB COMPANY-BMS-2020-069029

PATIENT
  Age: 70 Year
  Sex: Male
  Weight: 102 kg

DRUGS (3)
  1. AMIODARON [AMIODARONE] [Interacting]
     Active Substance: AMIODARONE
     Indication: TACHYARRHYTHMIA
     Dosage: 200 ABSENT, QD
     Route: 048
  2. BISOPROLOL [Suspect]
     Active Substance: BISOPROLOL
     Indication: ATRIAL FIBRILLATION
     Dosage: 5 ABSENT, QD
     Route: 048
  3. ELIQUIS [Suspect]
     Active Substance: APIXABAN
     Indication: CEREBROVASCULAR ACCIDENT PROPHYLAXIS
     Dosage: 5 MILLIGRAM, BID
     Route: 048
     Dates: start: 20200820

REACTIONS (3)
  - Atrial thrombosis [Recovered/Resolved]
  - Drug interaction [Unknown]
  - Drug ineffective [Unknown]
